FAERS Safety Report 13255511 (Version 1)
Quarter: 2017Q1

REPORT INFORMATION
  Report Type: Spontaneous
  Country: US (occurrence: US)
  Receive Date: 20170217
  Receipt Date: 20170217
  Transmission Date: 20170428
  Serious: Yes (Disabling, Other)
  Sender: FDA-Public Use
  Company Number: None

PATIENT
  Age: 40 Year
  Sex: Female
  Weight: 95.4 kg

DRUGS (1)
  1. LEVOFLOXACIN. [Suspect]
     Active Substance: LEVOFLOXACIN
     Indication: SINUSITIS
     Dosage: ?          QUANTITY:1 TABLET(S);?
     Route: 048
     Dates: start: 20170211, end: 20170211

REACTIONS (5)
  - Muscle spasms [None]
  - Anxiety [None]
  - Arthralgia [None]
  - Suicidal ideation [None]
  - Muscular weakness [None]

NARRATIVE: CASE EVENT DATE: 20170211
